FAERS Safety Report 6419785-8 (Version None)
Quarter: 2009Q4

REPORT INFORMATION
  Report Type: 
  Country: None (occurrence: None)
  Receive Date: 20091016
  Receipt Date: 20081007
  Transmission Date: 20100525
  Serious: Yes (Other)
  Sender: FDA-Public Use
  Company Number: 2008S1000575

PATIENT
  Sex: Female

DRUGS (2)
  1. DARVOCET-N 100 [Suspect]
  2. MIRAPEX [Suspect]
     Dosage: 0.125 MG;

REACTIONS (3)
  - CONVULSION [None]
  - DRUG ABUSER [None]
  - ROAD TRAFFIC ACCIDENT [None]
